FAERS Safety Report 8377212-8 (Version None)
Quarter: 2012Q2

REPORT INFORMATION
  Report Type: 
  Country: None (occurrence: None)
  Receive Date: 20120522
  Receipt Date: 20120518
  Transmission Date: 20120825
  Serious: Yes (Hospitalization)
  Sender: FDA-Public Use
  Company Number: GB-ROCHE-1070649

PATIENT
  Sex: Female
  Weight: 86 kg

DRUGS (2)
  1. ARAVA [Concomitant]
  2. ACTEMRA [Suspect]
     Indication: RHEUMATOID ARTHRITIS
     Dosage: DATE OF LAST DOSE PRIOR TO SAE: 16/SEP/2011
     Route: 065
     Dates: start: 20110318

REACTIONS (1)
  - BACK PAIN [None]
